FAERS Safety Report 25064389 (Version 1)
Quarter: 2025Q1

REPORT INFORMATION
  Report Type: Spontaneous
  Country: JP (occurrence: JP)
  Receive Date: 20250311
  Receipt Date: 20250311
  Transmission Date: 20250409
  Serious: Yes (Other)
  Sender: IDORSIA PHARMACEUTICALS
  Company Number: JP-IDORSIA-009184-2025-JP

PATIENT
  Age: 5 Decade
  Sex: Female

DRUGS (1)
  1. QUVIVIQ [Suspect]
     Active Substance: DARIDOREXANT
     Indication: Insomnia
     Route: 048
     Dates: start: 20250111, end: 20250111

REACTIONS (7)
  - Respiratory depression [Recovered/Resolved]
  - Choking sensation [Recovered/Resolved]
  - Palpitations [Recovered/Resolved]
  - Head discomfort [Recovered/Resolved]
  - Nightmare [Recovered/Resolved]
  - Hallucination, auditory [Recovered/Resolved]
  - Malaise [Recovered/Resolved]

NARRATIVE: CASE EVENT DATE: 20250111
